FAERS Safety Report 7645912-0 (Version None)
Quarter: 2011Q3

REPORT INFORMATION
  Report Type: 
  Country: None (occurrence: None)
  Receive Date: 20110729
  Receipt Date: 20110720
  Transmission Date: 20111222
  Serious: Yes (Other)
  Sender: FDA-Public Use
  Company Number: US-ASTRAZENECA-2011SE43811

PATIENT
  Age: 77 Year
  Sex: Female

DRUGS (1)
  1. ATACAND HCT [Suspect]
     Dosage: TOTAL DAILY DOSAGE 32 MILLIGRAM
     Route: 048

REACTIONS (7)
  - MALIGNANT TUMOUR EXCISION [None]
  - UPPER EXTREMITY MASS [None]
  - LACRIMATION INCREASED [None]
  - NEOPLASM MALIGNANT [None]
  - DRUG INEFFECTIVE [None]
  - VISUAL IMPAIRMENT [None]
  - EXPIRED DRUG ADMINISTERED [None]
